FAERS Safety Report 11152148 (Version 3)
Quarter: 2015Q4

REPORT INFORMATION
  Report Type: Spontaneous
  Country: US (occurrence: US)
  Receive Date: 20150601
  Receipt Date: 20151008
  Transmission Date: 20160304
  Serious: No
  Sender: FDA-Public Use
  Company Number: US-BRISTOL-MYERS SQUIBB COMPANY-BMS-2015-034585

PATIENT
  Sex: Male

DRUGS (3)
  1. ABILIFY [Suspect]
     Active Substance: ARIPIPRAZOLE
     Indication: DEPRESSION
     Dosage: 4 MG, BID
     Route: 065
     Dates: start: 2010, end: 2013
  2. PROZAC [Concomitant]
     Active Substance: FLUOXETINE HYDROCHLORIDE
     Indication: PRODUCT USED FOR UNKNOWN INDICATION
     Route: 065
  3. ZOFRAN [Concomitant]
     Active Substance: ONDANSETRON HYDROCHLORIDE
     Indication: PRODUCT USED FOR UNKNOWN INDICATION
     Route: 065

REACTIONS (7)
  - Dysgeusia [Unknown]
  - Counterfeit drug administered [Unknown]
  - Dizziness [Unknown]
  - Vomiting [Not Recovered/Not Resolved]
  - Pain in extremity [Recovered/Resolved]
  - Feeling abnormal [Unknown]
  - Disorientation [Unknown]
